FAERS Safety Report 9596709 (Version 1)
Quarter: 2013Q4

REPORT INFORMATION
  Report Type: Spontaneous
  Country: DE (occurrence: DE)
  Receive Date: 20131004
  Receipt Date: 20131004
  Transmission Date: 20140711
  Serious: Yes (Other)
  Sender: FDA-Public Use
  Company Number: DE-GLAXOSMITHKLINE-B0921757A

PATIENT
  Age: 63 Year
  Sex: Male
  Weight: 70 kg

DRUGS (2)
  1. XGEVA [Suspect]
     Indication: METASTATIC RENAL CELL CARCINOMA
     Dosage: 1320MG CUMULATIVE DOSE
     Route: 065
     Dates: start: 20111121, end: 20120911
  2. PAZOPANIB [Suspect]
     Indication: RENAL CELL CARCINOMA
     Dosage: 400MG PER DAY
     Route: 048
     Dates: start: 20121115, end: 20121231

REACTIONS (1)
  - Osteonecrosis of jaw [Recovered/Resolved]
